FAERS Safety Report 9913242 (Version 1)
Quarter: 2014Q1

REPORT INFORMATION
  Report Type: Spontaneous
  Country: US (occurrence: None)
  Receive Date: 20140219
  Receipt Date: 20140219
  Transmission Date: 20141002
  Serious: No
  Sender: FDA-Public Use
  Company Number: None

PATIENT
  Sex: 0

DRUGS (1)
  1. RISPERDAL [Suspect]

REACTIONS (7)
  - Gynaecomastia [None]
  - Galactorrhoea [None]
  - Breast pain [None]
  - Diabetes mellitus [None]
  - Suicide attempt [None]
  - Bipolar I disorder [None]
  - Anxiety [None]
